FAERS Safety Report 17159704 (Version 1)
Quarter: 2019Q4

REPORT INFORMATION
  Report Type: Spontaneous
  Country: US (occurrence: US)
  Receive Date: 20191216
  Receipt Date: 20191216
  Transmission Date: 20200122
  Serious: No
  Sender: FDA-Public Use
  Company Number: US-BAUSCH-BL-2019-061494

PATIENT
  Sex: Female

DRUGS (1)
  1. LUMIFY [Suspect]
     Active Substance: BRIMONIDINE TARTRATE
     Indication: PRODUCT USED FOR UNKNOWN INDICATION
     Dosage: I PUT A DROP IN MY LEFT EYE
     Route: 047

REACTIONS (4)
  - Abnormal sensation in eye [Unknown]
  - Visual impairment [Unknown]
  - Eye irritation [Unknown]
  - Eye pain [Unknown]
